FAERS Safety Report 10872142 (Version 2)
Quarter: 2015Q2

REPORT INFORMATION
  Report Type: Spontaneous
  Country: US (occurrence: US)
  Receive Date: 20150226
  Receipt Date: 20150601
  Transmission Date: 20150821
  Serious: No
  Sender: FDA-Public Use
  Company Number: US-TEVA-541894USA

PATIENT
  Age: 2 Year
  Sex: Male

DRUGS (1)
  1. QVAR [Suspect]
     Active Substance: BECLOMETHASONE DIPROPIONATE

REACTIONS (2)
  - Device malfunction [Unknown]
  - Cough [Unknown]

NARRATIVE: CASE EVENT DATE: 201502
